FAERS Safety Report 21241101 (Version 2)
Quarter: 2025Q3

REPORT INFORMATION
  Report Type: Spontaneous
  Country: EU (occurrence: EU)
  Receive Date: 20220823
  Receipt Date: 20250815
  Transmission Date: 20251021
  Serious: Yes (Death, Other)
  Sender: AUROBINDO
  Company Number: EU-ETHYPHARM-2022001471

PATIENT
  Age: 22 Year
  Sex: Female

DRUGS (7)
  1. CIPROFLOXACIN [Suspect]
     Active Substance: CIPROFLOXACIN
     Indication: Bacterial infection
     Dosage: 400 MILLIGRAM, TWO TIMES A DAY (400 MG/12)
     Route: 042
  2. COLISTIN [Suspect]
     Active Substance: COLISTIN
     Indication: Multiple-drug resistance
     Route: 034
  3. COLISTIN [Suspect]
     Active Substance: COLISTIN
  4. AMIKACIN [Suspect]
     Active Substance: AMIKACIN
     Indication: Bacterial infection
     Dosage: 15 MILLIGRAM/KILOGRAM, ONCE A DAY (15 MG/KG/24)
     Route: 042
  5. CEFTAZIDIME [Suspect]
     Active Substance: CEFTAZIDIME
     Indication: Pseudomonas infection
     Dosage: 2 GRAM, 3 TIMES A DAY
     Route: 042
  6. CEFTOLOZANE [Suspect]
     Active Substance: CEFTOLOZANE
     Indication: Bacterial infection
     Dosage: 2 GRAM, 3 TIMES A DAY
     Route: 042
  7. TAZOBACTAM [Suspect]
     Active Substance: TAZOBACTAM
     Indication: Bacterial infection
     Dosage: 1 GRAM, 3 TIMES A DAY
     Route: 042

REACTIONS (2)
  - Hypoxia [Fatal]
  - Hyperhidrosis [Fatal]
